FAERS Safety Report 10686988 (Version 1)
Quarter: 2015Q1

REPORT INFORMATION
  Report Type: Report from Study
  Country: CN (occurrence: CN)
  Receive Date: 20150102
  Receipt Date: 20150102
  Transmission Date: 20150720
  Serious: Yes (Death)
  Sender: FDA-Public Use
  Company Number: CN-PFIZER INC-2014362779

PATIENT
  Age: 45 Year
  Sex: Female
  Weight: 52 kg

DRUGS (32)
  1. CRIZOTINIB [Suspect]
     Active Substance: CRIZOTINIB
     Dosage: UNK
     Dates: start: 20140507, end: 20140603
  2. CRIZOTINIB [Suspect]
     Active Substance: CRIZOTINIB
     Dosage: UNK
     Dates: start: 20140702, end: 20140729
  3. ESOMEPRAZOLE [Concomitant]
     Active Substance: ESOMEPRAZOLE
     Dosage: 20 MG, 1X/DAY
     Route: 048
     Dates: start: 20140404, end: 20140414
  4. POTASSIUM CHLORIDE. [Concomitant]
     Active Substance: POTASSIUM CHLORIDE
     Dosage: 500 MG, 3X/DAY
     Route: 048
     Dates: start: 20140606, end: 20140610
  5. ZOLEDRONIC ACID [Concomitant]
     Active Substance: ZOLEDRONIC ACID
     Dosage: 4 MG, 1X/DAY
     Route: 042
     Dates: start: 20140609, end: 20140609
  6. CRIZOTINIB [Suspect]
     Active Substance: CRIZOTINIB
     Dosage: UNK
     Dates: start: 20141121, end: 20141228
  7. CRIZOTINIB [Suspect]
     Active Substance: CRIZOTINIB
     Dosage: UNK
     Dates: start: 20140423, end: 20140506
  8. SPIRONOLACTONE. [Concomitant]
     Active Substance: SPIRONOLACTONE
     Dosage: 20 MG, 1X/DAY
     Route: 048
     Dates: start: 20140403, end: 20140414
  9. HUMAN SERUM ALBUMIN [Concomitant]
     Dosage: 10 G, 1X/DAY
     Route: 042
     Dates: start: 20140605, end: 20140610
  10. POTASSIUM CHLORIDE. [Concomitant]
     Active Substance: POTASSIUM CHLORIDE
     Dosage: 5 ML, 1X/DAY
     Route: 042
     Dates: start: 20140402, end: 20140414
  11. CRIZOTINIB [Suspect]
     Active Substance: CRIZOTINIB
     Indication: NON-SMALL CELL LUNG CANCER
     Dosage: UNK
     Dates: start: 20140409, end: 20140422
  12. FRUSEMIDE [Concomitant]
     Active Substance: FUROSEMIDE
     Dosage: 20 MG, 1X/DAY
     Route: 048
     Dates: start: 20140308, end: 20140320
  13. PLATYCODON GRANDIFLORUM [Concomitant]
     Dosage: 0.3 G, 2X/DAY
     Route: 048
     Dates: start: 20140402, end: 20140414
  14. HUMAN SERUM ALBUMIN [Concomitant]
     Dosage: 10 G, 1X/DAY
     Route: 042
     Dates: start: 20140402, end: 20140414
  15. CRIZOTINIB [Suspect]
     Active Substance: CRIZOTINIB
     Dosage: UNK
     Dates: start: 20140925, end: 20141021
  16. SPIRONOLACTONE. [Concomitant]
     Active Substance: SPIRONOLACTONE
     Dosage: 20 MG, 1X/DAY
     Route: 048
     Dates: start: 20140308, end: 20140320
  17. FRUSEMIDE [Concomitant]
     Active Substance: FUROSEMIDE
     Dosage: 10 MG, 1X/DAY
     Route: 048
     Dates: start: 20140403, end: 20140414
  18. SMECTITE [Concomitant]
     Active Substance: MONTMORILLONITE
     Dosage: 3 G, 3X/DAY
     Route: 048
     Dates: start: 20140409, end: 20140410
  19. VITAMIN B6 [Concomitant]
     Active Substance: PYRIDOXINE HYDROCHLORIDE
     Dosage: 200 MG, 1X/DAY
     Route: 042
     Dates: start: 20140402, end: 20140416
  20. CRIZOTINIB [Suspect]
     Active Substance: CRIZOTINIB
     Dosage: UNK
     Dates: start: 20140819, end: 20140825
  21. CRIZOTINIB [Suspect]
     Active Substance: CRIZOTINIB
     Dosage: UNK
     Dates: start: 20140826, end: 20140924
  22. HUMAN SERUM ALBUMIN [Concomitant]
     Dosage: 10 G, 1X/DAY
     Route: 042
     Dates: start: 20140424, end: 20140501
  23. VITAMIN C [Concomitant]
     Active Substance: ASCORBIC ACID
     Dosage: 2 G, 1X/DAY
     Route: 042
     Dates: start: 20140402, end: 20140414
  24. CRIZOTINIB [Suspect]
     Active Substance: CRIZOTINIB
     Dosage: UNK
     Dates: start: 20141022, end: 20141119
  25. LOXOPROFEN SODIUM [Concomitant]
     Active Substance: LOXOPROFEN SODIUM
     Dosage: 60 MG, 2X/DAY
     Route: 048
     Dates: start: 20140402, end: 20140414
  26. INDOMETHACIN. [Concomitant]
     Active Substance: INDOMETHACIN
     Dosage: 50 MG, SINGLE
     Route: 054
     Dates: start: 20140609, end: 20140609
  27. CRIZOTINIB [Suspect]
     Active Substance: CRIZOTINIB
     Dosage: UNK
     Dates: start: 20140604, end: 20140701
  28. CRIZOTINIB [Suspect]
     Active Substance: CRIZOTINIB
     Dosage: UNK
     Dates: start: 20140730, end: 20140804
  29. LOXOPROFEN SODIUM [Concomitant]
     Active Substance: LOXOPROFEN SODIUM
     Dosage: 60 MG, 2X/DAY
     Route: 048
     Dates: start: 20140305, end: 20140320
  30. PLATYCODON GRANDIFLORUM [Concomitant]
     Dosage: 1 TABLET, 1X/DAY
     Route: 048
     Dates: start: 20140307, end: 20140320
  31. HUMAN SERUM ALBUMIN [Concomitant]
     Dosage: 10 G, 1X/DAY
     Route: 042
     Dates: start: 20140703, end: 20140705
  32. GUAIFENESIN. [Concomitant]
     Active Substance: GUAIFENESIN
     Dosage: 10 ML, 3X/DAY
     Route: 048
     Dates: start: 20140609, end: 20140610

REACTIONS (1)
  - Cardiac arrest [Fatal]

NARRATIVE: CASE EVENT DATE: 20141229
